FAERS Safety Report 18961458 (Version 4)
Quarter: 2021Q2

REPORT INFORMATION
  Report Type: Spontaneous
  Country: JP (occurrence: JP)
  Receive Date: 20210302
  Receipt Date: 20210609
  Transmission Date: 20210717
  Serious: Yes (Other)
  Sender: FDA-Public Use
  Company Number: JP-BRISTOL-MYERS SQUIBB COMPANY-BMS-2019-126925

PATIENT
  Age: 61 Year
  Sex: Male
  Weight: 67.9 kg

DRUGS (5)
  1. BRAFTOVI [Suspect]
     Active Substance: ENCORAFENIB
     Indication: MALIGNANT MELANOMA
     Dosage: 450 MG
     Route: 048
     Dates: start: 20191126, end: 20191128
  2. YERVOY [Suspect]
     Active Substance: IPILIMUMAB
     Indication: MALIGNANT MELANOMA
     Dosage: UNK
     Route: 041
     Dates: end: 20191105
  3. OPDIVO [Suspect]
     Active Substance: NIVOLUMAB
     Indication: MALIGNANT MELANOMA
     Dosage: UNK
     Route: 041
     Dates: start: 20190513, end: 20190902
  4. MEKTOVI [Suspect]
     Active Substance: BINIMETINIB
     Indication: MALIGNANT MELANOMA
     Dosage: 45 MILLIGRAM
     Route: 048
     Dates: start: 20191126, end: 20191128
  5. OPDIVO [Suspect]
     Active Substance: NIVOLUMAB
     Dosage: UNK
     Route: 041
     Dates: end: 20191105

REACTIONS (2)
  - Nausea [Recovered/Resolved]
  - Serous retinal detachment [Recovered/Resolved]

NARRATIVE: CASE EVENT DATE: 20191129
